FAERS Safety Report 16318428 (Version 2)
Quarter: 2020Q1

REPORT INFORMATION
  Report Type: Report from Study
  Country: US (occurrence: US)
  Receive Date: 20190516
  Receipt Date: 20200106
  Transmission Date: 20200409
  Serious: Yes (Other)
  Sender: FDA-Public Use
  Company Number: US-ROCHE-2314154

PATIENT
  Sex: Female
  Weight: 64.92 kg

DRUGS (4)
  1. AMPYRA [Concomitant]
     Active Substance: DALFAMPRIDINE
  2. TYLENOL [Concomitant]
     Active Substance: ACETAMINOPHEN
  3. OXYBUTYNIN. [Concomitant]
     Active Substance: OXYBUTYNIN CHLORIDE
  4. OCREVUS [Suspect]
     Active Substance: OCRELIZUMAB
     Indication: RELAPSING-REMITTING MULTIPLE SCLEROSIS
     Dosage: ON 31/AUG/2017, 17/FEB/2018, 23/OCT/2018 AND 25/APR/2019, SHE RECEIVED OCRELIZUMAB INFUSION.
     Route: 065
     Dates: start: 2017

REACTIONS (2)
  - Gait disturbance [Not Recovered/Not Resolved]
  - Urinary tract infection [Unknown]
